FAERS Safety Report 6703266-8 (Version None)
Quarter: 2010Q2

REPORT INFORMATION
  Report Type: 
  Country: None (occurrence: None)
  Receive Date: 20100430
  Receipt Date: 20100421
  Transmission Date: 20101027
  Serious: Yes (Hospitalization)
  Sender: FDA-Public Use
  Company Number: US-ASTRAZENECA-2010SE17750

PATIENT
  Age: 89 Year
  Sex: Male

DRUGS (6)
  1. PRILOSEC [Suspect]
     Indication: GASTROOESOPHAGEAL REFLUX DISEASE
     Route: 048
     Dates: start: 19900101
  2. PLAVIX [Interacting]
     Indication: STENT PLACEMENT
     Route: 048
     Dates: start: 20090822
  3. RAMIPRIL [Concomitant]
     Dates: start: 20090822
  4. METOPROLOL [Concomitant]
     Dates: start: 20090822
  5. ASPIRIN [Concomitant]
     Dates: start: 20090822
  6. TYLENOL-500 [Concomitant]

REACTIONS (3)
  - CHEST DISCOMFORT [None]
  - DRUG INTERACTION [None]
  - STENT PLACEMENT [None]
